FAERS Safety Report 5480533-X (Version None)
Quarter: 2007Q4

REPORT INFORMATION
  Report Type: 
  Country: None (occurrence: None)
  Receive Date: 20071009
  Receipt Date: 20070928
  Transmission Date: 20080405
  Serious: Yes (Hospitalization)
  Sender: FDA-Public Use
  Company Number: US-JNJFOC-20071000021

PATIENT
  Age: 40 Year
  Sex: Male

DRUGS (13)
  1. PREZISTA [Suspect]
     Route: 048
  2. PREZISTA [Suspect]
     Indication: HIV INFECTION
     Route: 048
  3. NORVIR [Suspect]
     Route: 048
  4. NORVIR [Suspect]
     Indication: HIV INFECTION
     Route: 048
  5. TRUVADA [Suspect]
     Dosage: DOSE REPORTED AS 300/200 MG
     Route: 065
  6. TRUVADA [Suspect]
     Indication: HIV INFECTION
     Dosage: DOSE REPORTED AS 300/200 MG
     Route: 065
  7. LIPITOR [Interacting]
     Indication: BLOOD CHOLESTEROL INCREASED
     Route: 065
  8. LISINOPRIL [Concomitant]
     Route: 065
  9. LISINOPRIL [Concomitant]
     Indication: HYPERTENSION
     Route: 065
  10. AVANDIA [Concomitant]
     Indication: LIPODYSTROPHY ACQUIRED
     Route: 065
  11. ZETIA [Concomitant]
     Indication: BLOOD CHOLESTEROL INCREASED
     Route: 065
  12. MK0518 [Concomitant]
     Route: 048
  13. MK0518 [Concomitant]
     Indication: HIV INFECTION
     Route: 048

REACTIONS (3)
  - DRUG INTERACTION [None]
  - RENAL FAILURE ACUTE [None]
  - RHABDOMYOLYSIS [None]
